FAERS Safety Report 25070364 (Version 3)
Quarter: 2025Q3

REPORT INFORMATION
  Report Type: Spontaneous
  Country: CA (occurrence: CA)
  Receive Date: 20250312
  Receipt Date: 20250820
  Transmission Date: 20251021
  Serious: Yes (Hospitalization)
  Sender: PFIZER
  Company Number: CA-PFIZER INC-202500054342

PATIENT
  Age: 70 Year
  Sex: Male

DRUGS (6)
  1. SOMAVERT [Suspect]
     Active Substance: PEGVISOMANT
     Indication: Acromegaly
     Dosage: 30 MG, WEEKLY, DISCONTINUED
     Route: 058
     Dates: start: 20130605
  2. SOMAVERT [Suspect]
     Active Substance: PEGVISOMANT
     Dosage: 20 MG, WEEKLY
     Route: 058
     Dates: end: 2018
  3. SOMAVERT [Suspect]
     Active Substance: PEGVISOMANT
     Dosage: 30 MG, WEEKLY, DISCONTINUED
     Route: 058
     Dates: start: 20181109
  4. SOMAVERT [Suspect]
     Active Substance: PEGVISOMANT
     Dosage: 20 MG, 2X/WEEK, DISCONTINUED
     Route: 058
  5. SOMAVERT [Suspect]
     Active Substance: PEGVISOMANT
     Route: 058
  6. DOSTINEX [Concomitant]
     Active Substance: CABERGOLINE

REACTIONS (2)
  - Cardiac disorder [Unknown]
  - Viral infection [Unknown]

NARRATIVE: CASE EVENT DATE: 20250201
